FAERS Safety Report 15798843 (Version 1)
Quarter: 2019Q1

REPORT INFORMATION
  Report Type: Report from Study
  Country: None (occurrence: CA)
  Receive Date: 20190108
  Receipt Date: 20190108
  Transmission Date: 20190417
  Serious: Yes (Other)
  Sender: FDA-Public Use
  Company Number: CA-ABBVIE-17P-028-1934565-00

PATIENT
  Sex: Male

DRUGS (1)
  1. HUMIRA [Suspect]
     Active Substance: ADALIMUMAB
     Indication: CROHN^S DISEASE
     Route: 058
     Dates: start: 20170224

REACTIONS (4)
  - Procedural pain [Unknown]
  - Musculoskeletal pain [Recovering/Resolving]
  - Fistula [Unknown]
  - Postoperative adhesion [Unknown]

NARRATIVE: CASE EVENT DATE: 2017
